FAERS Safety Report 6368978-7 (Version None)
Quarter: 2009Q3

REPORT INFORMATION
  Report Type: 
  Country: None (occurrence: None)
  Receive Date: 20090922
  Receipt Date: 20090910
  Transmission Date: 20100115
  Serious: Yes (Other)
  Sender: FDA-Public Use
  Company Number: GB-ELI_LILLY_AND_COMPANY-GB200909002793

PATIENT
  Age: 35 Year
  Sex: Female

DRUGS (7)
  1. BYETTA [Suspect]
     Indication: TYPE 2 DIABETES MELLITUS
     Dosage: 5 UG, UNK
     Dates: start: 20090801
  2. BYETTA [Suspect]
     Dosage: UNKNOWN
  3. METFORMIN HCL [Concomitant]
  4. GLICLAZIDE [Concomitant]
  5. SIMVASTATIN [Concomitant]
  6. SALBUTAMOL [Concomitant]
  7. VENLAFAXINE [Concomitant]

REACTIONS (2)
  - CONTRAST MEDIA REACTION [None]
  - RASH GENERALISED [None]
